FAERS Safety Report 5019674-X (Version None)
Quarter: 2006Q2

REPORT INFORMATION
  Report Type: 
  Country: None (occurrence: None)
  Receive Date: 20060601
  Receipt Date: 20060428
  Transmission Date: 20061013
  Serious: Yes (Hospitalization)
  Sender: FDA-Public Use
  Company Number: 2006058943

PATIENT
  Age: 59 Year
  Sex: Female
  Weight: 106.1417 kg

DRUGS (1)
  1. CELEBREX [Suspect]
     Indication: ARTHRITIS
     Dosage: 200 MG (200 MG, 1 IN 1 D), UNKNOWN
     Route: 065
     Dates: start: 20000101

REACTIONS (3)
  - CEREBROVASCULAR ACCIDENT [None]
  - MEDICAL DEVICE REMOVAL [None]
  - SHOULDER OPERATION [None]
